FAERS Safety Report 5166989-0 (Version None)
Quarter: 2006Q4

REPORT INFORMATION
  Report Type: 
  Country: None (occurrence: None)
  Receive Date: 20061201
  Receipt Date: 20061201
  Transmission Date: 20070319
  Serious: Yes (Hospitalization)
  Sender: FDA-Public Use
  Company Number: None

PATIENT
  Sex: Female
  Weight: 23 kg

DRUGS (7)
  1. CYCLOPHOSPHAMIDE [Suspect]
     Indication: PINEALOBLASTOMA
     Dosage: 1560 MG QD IV DRIP
     Route: 041
     Dates: start: 20060606, end: 20060607
  2. CISPLATIN [Suspect]
     Indication: PINEALOBLASTOMA
     Dosage: 85 MG QD IV DRIP
     Route: 041
     Dates: start: 20060607, end: 20060609
  3. ETOPOSIDE [Concomitant]
  4. MESNA [Concomitant]
  5. LASIX [Concomitant]
  6. METHOTREXATE [Concomitant]
  7. LEUCOVORIN CALCIUM [Concomitant]

REACTIONS (12)
  - ACUTE RESPIRATORY DISTRESS SYNDROME [None]
  - CHOLECYSTITIS [None]
  - CYSTITIS HAEMORRHAGIC [None]
  - DISEASE RECURRENCE [None]
  - HAEMORRHAGIC INFARCTION [None]
  - HEMIPARESIS [None]
  - PANCREATITIS [None]
  - PHARYNGEAL INFLAMMATION [None]
  - PNEUMONIA PARAINFLUENZAE VIRAL [None]
  - RENAL DISORDER [None]
  - RESPIRATORY DISTRESS [None]
  - STOMATITIS [None]
